FAERS Safety Report 17963238 (Version 1)
Quarter: 2020Q2

REPORT INFORMATION
  Report Type: Spontaneous
  Country: US (occurrence: US)
  Receive Date: 20200630
  Receipt Date: 20200630
  Transmission Date: 20200714
  Serious: Yes (Other)
  Sender: FDA-Public Use
  Company Number: None

PATIENT
  Age: 41 Year
  Sex: Female

DRUGS (6)
  1. CYCLOBENZAPRINE 10MG [Concomitant]
     Active Substance: CYCLOBENZAPRINE
     Dates: start: 20200615
  2. DILTIAZEM 30 MG [Concomitant]
     Dates: start: 20200609
  3. AIMOVIG [Suspect]
     Active Substance: ERENUMAB-AOOE
     Indication: MIGRAINE
     Dosage: ?          OTHER FREQUENCY:ONCE MONTHYL;?
     Route: 058
     Dates: start: 20190425
  4. ARMOUR THYROID 0.5 GRAINS [Concomitant]
     Dates: start: 20200615
  5. RIZATRIPTAN ODT 10MG [Concomitant]
     Active Substance: RIZATRIPTAN BENZOATE
     Dates: start: 20200615
  6. METFORMIN [Concomitant]
     Active Substance: METFORMIN HYDROCHLORIDE
     Dates: start: 20200615

REACTIONS (2)
  - Injection site pain [None]
  - Injection site reaction [None]

NARRATIVE: CASE EVENT DATE: 20200630
